FAERS Safety Report 13562614 (Version 1)
Quarter: 2017Q2

REPORT INFORMATION
  Report Type: Spontaneous
  Country: US (occurrence: US)
  Receive Date: 20170518
  Receipt Date: 20170518
  Transmission Date: 20170830
  Serious: No
  Sender: FDA-Public Use
  Company Number: None

PATIENT
  Age: 45 Year
  Sex: Female

DRUGS (1)
  1. EPOPROSTENOL 1.5MG/VL TEVA [Suspect]
     Active Substance: EPOPROSTENOL
     Indication: PULMONARY ARTERIAL HYPERTENSION
     Dosage: 82 NG/KG/MIN CONTINUOUS IV
     Route: 042
     Dates: start: 20170501, end: 20170503

REACTIONS (3)
  - Rash generalised [None]
  - Angioedema [None]
  - Back pain [None]

NARRATIVE: CASE EVENT DATE: 20170501
